FAERS Safety Report 10217633 (Version 2)
Quarter: 2014Q2

REPORT INFORMATION
  Report Type: Report from Study
  Country: BR (occurrence: BR)
  Receive Date: 20140604
  Receipt Date: 20140604
  Transmission Date: 20141212
  Serious: Yes (Other)
  Sender: FDA-Public Use
  Company Number: PHHY2014BR066668

PATIENT
  Sex: 0

DRUGS (7)
  1. EXELON PATCH [Suspect]
     Indication: DEMENTIA ALZHEIMER^S TYPE
     Dosage: 1 ADHESIVE OF (9MG/5CM2), DAILY
     Dates: start: 201401, end: 201403
  2. EXELON PATCH [Suspect]
     Dosage: 1 ADHESIVE OF (18MG/10CM2), DAILY
     Dates: start: 201403
  3. METFORMIN [Concomitant]
     Indication: DIABETES MELLITUS
     Dosage: 1 DF, QD
  4. ATENOLOL [Concomitant]
     Indication: HYPERTENSION
     Dosage: 1 DF, QD
     Dates: end: 201404
  5. CAPTOPRIL [Concomitant]
     Indication: HYPERTENSION
     Dosage: 1 DF, QD
  6. DIMETIL [Concomitant]
     Indication: GLAUCOMA
     Dosage: 2 DROPS, DAILY
  7. PROCHLORPERAZINE MALEATE [Concomitant]
     Indication: GLAUCOMA
     Dosage: 2 DROPS, DAILY

REACTIONS (4)
  - Bipolar disorder [Not Recovered/Not Resolved]
  - Inappropriate affect [Not Recovered/Not Resolved]
  - Crying [Not Recovered/Not Resolved]
  - Aggression [Not Recovered/Not Resolved]
